FAERS Safety Report 7164701-7 (Version None)
Quarter: 2010Q4

REPORT INFORMATION
  Report Type: 
  Country: None (occurrence: None)
  Receive Date: 20101215
  Receipt Date: 20101210
  Transmission Date: 20110411
  Serious: Yes (Other)
  Sender: FDA-Public Use
  Company Number: US-ABBOTT-10P-163-0689421-00

PATIENT
  Sex: Female
  Weight: 73.548 kg

DRUGS (11)
  1. HUMIRA [Suspect]
     Indication: RHEUMATOID ARTHRITIS
     Dates: start: 20100101, end: 20101020
  2. HUMIRA [Suspect]
     Dates: start: 20101110
  3. METHOTREXATE [Concomitant]
     Indication: RHEUMATOID ARTHRITIS
  4. PREDNISONE [Concomitant]
     Indication: RHEUMATOID ARTHRITIS
  5. NORVASC [Concomitant]
     Indication: HYPERTENSION
  6. ZIAC [Concomitant]
     Indication: HYPERTENSION
  7. ARAVA [Concomitant]
     Indication: RHEUMATOID ARTHRITIS
  8. FOLIC ACID [Concomitant]
     Indication: VITAMIN SUPPLEMENTATION
  9. MULTI-VITAMIN [Concomitant]
     Indication: VITAMIN SUPPLEMENTATION
  10. VITAMIN E [Concomitant]
     Indication: VITAMIN SUPPLEMENTATION
  11. PAXIL [Concomitant]
     Indication: ANXIETY

REACTIONS (5)
  - BACK PAIN [None]
  - DYSMENORRHOEA [None]
  - MOBILITY DECREASED [None]
  - OEDEMA PERIPHERAL [None]
  - SCAR [None]
